FAERS Safety Report 11112522 (Version 2)
Quarter: 2015Q2

REPORT INFORMATION
  Report Type: Spontaneous
  Country: BR (occurrence: BR)
  Receive Date: 20150514
  Receipt Date: 20150521
  Transmission Date: 20150821
  Serious: Yes (Other)
  Sender: FDA-Public Use
  Company Number: PHHY2015BR042914

PATIENT
  Sex: Male
  Weight: 55 kg

DRUGS (5)
  1. DEPAKENE [Concomitant]
     Active Substance: VALPROIC ACID
     Indication: SEIZURE
     Dosage: 7.5 MG, BID (IN THE MORNING AND AT NIGHT)
     Route: 048
  2. RITALIN LA [Suspect]
     Active Substance: METHYLPHENIDATE HYDROCHLORIDE
     Indication: AGITATION
     Dosage: 10 MG, QD (30 CAPSULES)
     Route: 048
     Dates: start: 20150402
  3. NEULEPTIL [Concomitant]
     Active Substance: PERICIAZINE
     Indication: ABNORMAL BEHAVIOUR
     Dosage: UNK UNK, BID (IN THE MORNING AND AT NIGHT)
     Route: 065
  4. TRILEPTAL [Suspect]
     Active Substance: OXCARBAZEPINE
     Indication: SEIZURE
     Dosage: UNK UNK, BID
     Route: 048
  5. RISPERIDON [Concomitant]
     Active Substance: RISPERIDONE
     Indication: ABNORMAL BEHAVIOUR
     Dosage: 1 ML, QHS
     Route: 048

REACTIONS (6)
  - Wrong technique in drug usage process [Unknown]
  - Crying [Recovering/Resolving]
  - Insomnia [Recovering/Resolving]
  - Agitation [Recovering/Resolving]
  - Off label use [Unknown]
  - Anger [Recovering/Resolving]
